FAERS Safety Report 4692990-7 (Version None)
Quarter: 2005Q2

REPORT INFORMATION
  Report Type: 
  Country: None (occurrence: None)
  Receive Date: 20050223
  Receipt Date: 20050223
  Transmission Date: 20051028
  Serious: Yes (Life-Threatening)
  Sender: FDA-Public Use
  Company Number: None

PATIENT
  Sex: Female

DRUGS (1)
  1. PHENYTOIN [Suspect]
     Dosage: 700 MG QD IN DIVIDED DOSES

REACTIONS (3)
  - DRUG LEVEL CHANGED [None]
  - GRAND MAL CONVULSION [None]
  - PETIT MAL EPILEPSY [None]
